FAERS Safety Report 15744032 (Version 1)
Quarter: 2018Q4

REPORT INFORMATION
  Report Type: Spontaneous
  Country: IN (occurrence: IN)
  Receive Date: 20181220
  Receipt Date: 20181220
  Transmission Date: 20190205
  Serious: Yes (Hospitalization)
  Sender: FDA-Public Use
  Company Number: IN-IPCA LABORATORIES LIMITED-IPC-2018-IN-002441

PATIENT

DRUGS (7)
  1. TRAMADOL HYDROCHLORIDE TABLET [Suspect]
     Active Substance: TRAMADOL HYDROCHLORIDE
     Dosage: 50 MG, QD (2ND WEEK)
     Route: 048
  2. TRAMADOL HYDROCHLORIDE TABLET [Suspect]
     Active Substance: TRAMADOL HYDROCHLORIDE
     Indication: ANALGESIC THERAPY
     Dosage: 50 MG, UNK
     Route: 048
  3. RABICEF [Concomitant]
     Indication: ILL-DEFINED DISORDER
     Dosage: 20 MG, BID
     Route: 042
  4. TRAMADOL HYDROCHLORIDE TABLET [Suspect]
     Active Substance: TRAMADOL HYDROCHLORIDE
     Dosage: 100 MG, QD (1ST WEEK)
     Route: 048
  5. TRAMAZAC [Concomitant]
     Indication: ILL-DEFINED DISORDER
     Dosage: 100 MG, QD
     Route: 042
  6. OPTINEURON [Concomitant]
     Indication: ILL-DEFINED DISORDER
     Dosage: 3 ML, QD
     Route: 042
  7. EMSET [Concomitant]
     Indication: ILL-DEFINED DISORDER
     Dosage: 4 MG, QD
     Route: 042

REACTIONS (1)
  - Parkinsonism [Recovered/Resolved]
